FAERS Safety Report 7481162-9 (Version None)
Quarter: 2011Q2

REPORT INFORMATION
  Report Type: 
  Country: None (occurrence: None)
  Receive Date: 20110512
  Receipt Date: 20110512
  Transmission Date: 20111010
  Serious: Yes (Other)
  Sender: FDA-Public Use
  Company Number: None

PATIENT
  Age: 46 Year
  Sex: Female
  Weight: 162.3877 kg

DRUGS (1)
  1. FLUOXETINE [Suspect]
     Indication: DEPRESSION
     Dosage: 20 MG 1 DAILY
     Dates: start: 20110301, end: 20110309

REACTIONS (3)
  - POLYP [None]
  - ARRHYTHMIA [None]
  - CONDITION AGGRAVATED [None]
